FAERS Safety Report 4591030-8 (Version None)
Quarter: 2005Q1

REPORT INFORMATION
  Report Type: 
  Country: None (occurrence: None)
  Receive Date: 20050222
  Receipt Date: 20050222
  Transmission Date: 20050727
  Serious: No
  Sender: FDA-Public Use
  Company Number: None

PATIENT
  Age: 23 Year
  Sex: Female
  Weight: 70.3075 kg

DRUGS (1)
  1. PROZAC [Suspect]
     Indication: PANIC ATTACK
     Dosage: ONCE PER DAY    ORAL
     Route: 048
     Dates: start: 19931001, end: 19931007

REACTIONS (6)
  - ABNORMAL BEHAVIOUR [None]
  - HOMICIDAL IDEATION [None]
  - MANIA [None]
  - PARANOIA [None]
  - SELF-INJURIOUS IDEATION [None]
  - THINKING ABNORMAL [None]
